FAERS Safety Report 6242495-7 (Version None)
Quarter: 2009Q2

REPORT INFORMATION
  Report Type: 
  Country: None (occurrence: None)
  Receive Date: 20090622
  Receipt Date: 20090622
  Transmission Date: 20091009
  Serious: No
  Sender: FDA-Public Use
  Company Number: None

PATIENT
  Age: 54 Year
  Sex: Male
  Weight: 68.0396 kg

DRUGS (1)
  1. ZICAM NOSE SWAPS [Suspect]
     Indication: NASOPHARYNGITIS
     Dosage: ONE EVERY FLIGHT NASAL
     Route: 045
     Dates: start: 19990101, end: 20000101

REACTIONS (1)
  - ANOSMIA [None]
